FAERS Safety Report 9658090 (Version 1)
Quarter: 2013Q4

REPORT INFORMATION
  Report Type: Spontaneous
  Country: CA (occurrence: CA)
  Receive Date: 20131030
  Receipt Date: 20131030
  Transmission Date: 20140711
  Serious: Yes (Death, Hospitalization, Other)
  Sender: FDA-Public Use
  Company Number: PHHY2013CA119984

PATIENT
  Age: 27 Year
  Sex: Female

DRUGS (2)
  1. LORAZEPAM [Suspect]
     Indication: STATUS EPILEPTICUS
  2. PHENYTOIN [Suspect]
     Indication: STATUS EPILEPTICUS

REACTIONS (3)
  - Death [Fatal]
  - Status epilepticus [Unknown]
  - Drug ineffective [Unknown]
